FAERS Safety Report 13502221 (Version 1)
Quarter: 2017Q2

REPORT INFORMATION
  Report Type: Report from Study
  Country: FR (occurrence: FR)
  Receive Date: 20170502
  Receipt Date: 20170502
  Transmission Date: 20170830
  Serious: Yes (Death)
  Sender: FDA-Public Use
  Company Number: FR-ACCORD-050958

PATIENT
  Age: 53 Year
  Sex: Male

DRUGS (5)
  1. BACLOFEN. [Suspect]
     Active Substance: BACLOFEN
     Dosage: DRUG PACK
  2. METOPROLOL. [Suspect]
     Active Substance: METOPROLOL
     Dosage: DRUG PACKS
  3. PERINDOPRIL/PERINDOPRIL ERBUMINE [Suspect]
     Active Substance: PERINDOPRIL ERBUMINE
     Dosage: DRUG PACKS
  4. COLCHICINE. [Suspect]
     Active Substance: COLCHICINE
     Dosage: DRUG PACK
  5. ESCITALOPRAM [Suspect]
     Active Substance: ESCITALOPRAM OXALATE
     Dosage: DRUG PACKS

REACTIONS (3)
  - Drug use disorder [Fatal]
  - Cardiac arrest [Fatal]
  - Toxicity to various agents [Fatal]
